FAERS Safety Report 4982854-3 (Version None)
Quarter: 2006Q2

REPORT INFORMATION
  Report Type: 
  Country: None (occurrence: None)
  Receive Date: 20060420
  Receipt Date: 20060412
  Transmission Date: 20061013
  Serious: Yes (Hospitalization)
  Sender: FDA-Public Use
  Company Number: 002"#1#2006-00100

PATIENT
  Age: 34 Year
  Sex: Female
  Weight: 129.2752 kg

DRUGS (1)
  1. NIRAVAM [Suspect]
     Indication: ANXIETY
     Dosage: 1 ONCE ORAL
     Route: 048
     Dates: start: 20060123, end: 20060123

REACTIONS (12)
  - CHEST DISCOMFORT [None]
  - CHEST PAIN [None]
  - DYSPNOEA [None]
  - ERYTHEMA [None]
  - HEART RATE INCREASED [None]
  - HEPATIC ENZYME INCREASED [None]
  - NAUSEA [None]
  - PHARMACEUTICAL PRODUCT COMPLAINT [None]
  - RASH [None]
  - REACTION TO DRUG EXCIPIENTS [None]
  - SWELLING FACE [None]
  - THROAT TIGHTNESS [None]
